FAERS Safety Report 9491409 (Version 2)
Quarter: 2013Q1

REPORT INFORMATION
  Report Type: Not Available
  Country: US (occurrence: US)
  Receive Date: 20120619
  Receipt Date: 20120619
  Transmission Date: 20140127
  Serious: Yes (Hospitalization)
  Sender: FDA-Public Use
  Company Number: US-LUNDBECK-DKLU1061800

PATIENT
  Age: 20 None
  Sex: Male
  Weight: 66 kg

DRUGS (10)
  1. CLOBAZAM [Suspect]
     Indication: LENNOX-GASTAUT SYNDROME
     Route: 048
     Dates: start: 20091218
  2. CLOBAZAM [Suspect]
     Route: 048
     Dates: start: 20090612, end: 20091218
  3. CLOBAZAM [Suspect]
     Route: 048
     Dates: start: 20081222, end: 20090612
  4. CLOBAZAM [Suspect]
     Dates: start: 20060706
  5. VAGAL NERVE STIMULATOR [Concomitant]
     Indication: CONVULSION
     Route: 050
     Dates: start: 20050829
  6. DEPAKOTE [Concomitant]
     Indication: CONVULSION
     Route: 050
     Dates: start: 20090810, end: 20091201
  7. DEPAKOTE [Concomitant]
     Indication: CONVULSION
     Route: 050
     Dates: start: 20091202, end: 20091216
  8. DEPAKOTE [Concomitant]
     Indication: CONVULSION
     Route: 050
     Dates: start: 20091217
  9. KLONOPIN [Concomitant]
     Indication: CONVULSION
     Route: 050
     Dates: start: 20091213, end: 20091218
  10. TRAZODONE [Concomitant]
     Indication: INSOMNIA
     Route: 050

REACTIONS (2)
  - Pneumonia [Recovered/Resolved]
  - Status epilepticus [Recovered/Resolved]
